FAERS Safety Report 5788453-8 (Version None)
Quarter: 2008Q2

REPORT INFORMATION
  Report Type: 
  Country: None (occurrence: None)
  Receive Date: 20080623
  Receipt Date: 20080609
  Transmission Date: 20081010
  Serious: Yes (Death)
  Sender: FDA-Public Use
  Company Number: 2008AL005161

PATIENT
  Age: 80 Year
  Sex: Female
  Weight: 104.3273 kg

DRUGS (8)
  1. DIGOXIN [Suspect]
     Indication: ATRIAL FIBRILLATION
     Dates: start: 20071001, end: 20080301
  2. COUMADIN [Concomitant]
  3. PREDNISONE 50MG TAB [Concomitant]
  4. LISINOPRIL [Concomitant]
  5. LASIX [Concomitant]
  6. POTASSIUM CHLORIDE [Concomitant]
  7. SPIRIVA [Concomitant]
  8. COMBIVENT [Concomitant]

REACTIONS (10)
  - ABASIA [None]
  - ANOREXIA [None]
  - DIARRHOEA [None]
  - DYSSTASIA [None]
  - HAEMOPTYSIS [None]
  - HEADACHE [None]
  - NAUSEA [None]
  - RETCHING [None]
  - SOMNOLENCE [None]
  - VISION BLURRED [None]
